FAERS Safety Report 9221521 (Version 1)
Quarter: 2013Q1

REPORT INFORMATION
  Report Type: Spontaneous
  Country: US (occurrence: None)
  Receive Date: 20120831
  Receipt Date: 20120831
  Transmission Date: 20140127
  Serious: No
  Sender: FDA-Public Use
  Company Number: 1000029844

PATIENT
  Age: 79 Year
  Sex: Male

DRUGS (20)
  1. DALIRESP [Suspect]
     Indication: CHRONIC OBSTRUCTIVE PULMONARY DISEASE
     Route: 048
     Dates: start: 20120414
  2. DALIRESP [Suspect]
     Indication: EMPHYSEMA
     Route: 048
     Dates: start: 20120414
  3. PLAVIX (CLOPIDOGREL BISULFATE) (CLOPIDOGREL BISULFATE) [Concomitant]
  4. TOPROL (METOPROLOL SUCCINATE) (METOPROLOL SUCCINATE) [Concomitant]
  5. GLIPIZIDE (GLIPIZIDE) (GLIPIZIDE) [Concomitant]
  6. GABAPENTIN (GABAPENTIN) (GABAPENTIN) [Concomitant]
  7. ZOCOR (SIMVASTATIN) (SIMVASTATIN) [Concomitant]
  8. PRAVASTATIN (PRAVASTATIN) (PRAVASTATIN) [Concomitant]
  9. ZESTRIL (LISINOPRIL) (LISINOPRIL) [Concomitant]
  10. LEVEMIR (INSULIN DETEMIR) (INSULIN DETEMIR) [Concomitant]
  11. SERTRALINE (SERTRALINE) (SERTRALINE) [Concomitant]
  12. FISH OIL (FISH OIL) (FISH OIL) [Concomitant]
  13. VITAMIN B 12 (VITAMIN B 12) (VITAMIN B 12) [Concomitant]
  14. VITAMIN B 3 (VITAMIN B 3) (VITAMIN B 3) [Concomitant]
  15. ATROVENT (IPRATROPIUM BROMIDE) (IPRATROPIUM BROMIDE) [Concomitant]
  16. VITAMIN B COMPLEX (VITAMINB B COMPLEX) (VITAMIN B COMPLEX) [Concomitant]
  17. COUMADIN (WARFIN) (WARFARIN) [Concomitant]
  18. PRILOSEC (OMEPRAZOLE) (OMEPRAZOLE) [Concomitant]
  19. ARICEPT (DONEPEZIL HYDROCHLORIDE) (DONEPEZIL HYDROCHLORIDE) [Concomitant]
  20. NITROSTAT (GLYCERYL TRINITRATE) (GLYCERYL TRINITRATE) [Concomitant]

REACTIONS (4)
  - Diarrhoea [None]
  - Headache [None]
  - Dizziness [None]
  - Drug ineffective [None]
